FAERS Safety Report 8529717-4 (Version None)
Quarter: 2012Q3

REPORT INFORMATION
  Report Type: 
  Country: None (occurrence: None)
  Receive Date: 20120723
  Receipt Date: 20120711
  Transmission Date: 20120928
  Serious: Yes (Other)
  Sender: FDA-Public Use
  Company Number: ES-CELGENEUS-144-21880-12071239

PATIENT
  Age: 77 Year
  Sex: Male

DRUGS (3)
  1. REVLIMID [Suspect]
     Indication: MYELOMA RECURRENCE
     Route: 048
     Dates: start: 20070901, end: 20100301
  2. REVLIMID [Suspect]
     Route: 048
     Dates: start: 20100301
  3. DEXAMETHASONE [Concomitant]
     Indication: MYELOMA RECURRENCE
     Route: 065
     Dates: start: 20070901

REACTIONS (2)
  - RENAL CELL CARCINOMA [None]
  - HEPATITIS B [None]
